FAERS Safety Report 4676453-0 (Version None)
Quarter: 2005Q2

REPORT INFORMATION
  Report Type: 
  Country: None (occurrence: None)
  Receive Date: 20050527
  Receipt Date: 20050323
  Transmission Date: 20051028
  Serious: Yes (Other)
  Sender: FDA-Public Use
  Company Number: US-GLAXOSMITHKLINE-A0550968A

PATIENT
  Age: 75 Year
  Sex: Female

DRUGS (5)
  1. CITRUCEL CAPLETS [Suspect]
     Indication: CONSTIPATION
     Route: 048
     Dates: start: 20040901
  2. SYNTHROID [Concomitant]
     Indication: HYPOTHYROIDISM
     Dosage: 75MCG PER DAY
     Route: 048
  3. HYZAAR [Concomitant]
     Indication: HYPERTENSION
     Dosage: 12.5MG PER DAY
     Route: 048
  4. MULTIVITAMIN [Concomitant]
     Indication: VITAMIN SUPPLEMENTATION
     Route: 048
  5. LIPITOR [Concomitant]
     Dosage: 10MG PER DAY
     Route: 048

REACTIONS (4)
  - DRUG INEFFECTIVE [None]
  - GLUCOSE TOLERANCE IMPAIRED [None]
  - RECTAL TENESMUS [None]
  - VASODILATATION [None]
